FAERS Safety Report 9007086 (Version 2)
Quarter: 2013Q1

REPORT INFORMATION
  Report Type: Report from Study
  Country: GB (occurrence: GB)
  Receive Date: 20130110
  Receipt Date: 20130128
  Transmission Date: 20140127
  Serious: Yes (Other)
  Sender: FDA-Public Use
  Company Number: GB-ROCHE-1177227

PATIENT
  Sex: 0

DRUGS (1)
  1. RANIBIZUMAB [Suspect]
     Indication: AGE-RELATED MACULAR DEGENERATION
     Route: 050

REACTIONS (5)
  - Endophthalmitis [Unknown]
  - Vitreous opacities [Unknown]
  - Retinal detachment [Unknown]
  - Angle closure glaucoma [Unknown]
  - Atrophy of globe [Unknown]
